FAERS Safety Report 9718545 (Version 1)
Quarter: 2013Q4

REPORT INFORMATION
  Report Type: Spontaneous
  Country: US (occurrence: None)
  Receive Date: 20131125
  Receipt Date: 20131125
  Transmission Date: 20140711
  Serious: Yes (Life-Threatening)
  Sender: FDA-Public Use
  Company Number: 2013P1021055

PATIENT
  Age: 64 Year
  Sex: Female

DRUGS (1)
  1. HEPARIN [Suspect]

REACTIONS (5)
  - Heparin-induced thrombocytopenia [None]
  - Cerebral haemorrhage [None]
  - Hyponatraemia [None]
  - Adrenal insufficiency [None]
  - Adrenal haemorrhage [None]
